FAERS Safety Report 5820177-0 (Version None)
Quarter: 2008Q3

REPORT INFORMATION
  Report Type: 
  Country: None (occurrence: None)
  Receive Date: 20080724
  Receipt Date: 20080716
  Transmission Date: 20090109
  Serious: Yes (Other)
  Sender: FDA-Public Use
  Company Number: PHHY2008DE14373

PATIENT
  Sex: Female

DRUGS (1)
  1. IMMUNOSPORIN [Suspect]
     Indication: DERMATITIS ATOPIC
     Dosage: 150 MG/DAY
     Route: 048
     Dates: end: 20080601

REACTIONS (5)
  - COORDINATION ABNORMAL [None]
  - FALL [None]
  - GENITAL RASH [None]
  - HYPERTENSION [None]
  - VIRAL INFECTION [None]
